FAERS Safety Report 8946750 (Version 2)
Quarter: 2013Q1

REPORT INFORMATION
  Report Type: Spontaneous
  Country: US (occurrence: US)
  Receive Date: 20121205
  Receipt Date: 20130128
  Transmission Date: 20140127
  Serious: Yes (Other)
  Sender: FDA-Public Use
  Company Number: US-BAYER-2012-126420

PATIENT
  Age: 38 Year
  Sex: Female
  Weight: 100.68 kg

DRUGS (2)
  1. MIRENA [Suspect]
     Indication: MENORRHAGIA
     Dosage: 20 MCG/24HR, CONT
     Route: 015
     Dates: start: 20110509, end: 20121204
  2. MIRENA [Suspect]
     Indication: MENORRHAGIA
     Dosage: 20 MCG/24HR, CONT
     Route: 015
     Dates: start: 20121204

REACTIONS (4)
  - Device expulsion [None]
  - Menorrhagia [None]
  - Genital haemorrhage [None]
  - Vaginal haemorrhage [None]
